FAERS Safety Report 10888351 (Version 1)
Quarter: 2015Q1

REPORT INFORMATION
  Report Type: Spontaneous
  Country: US (occurrence: US)
  Receive Date: 20150305
  Receipt Date: 20150305
  Transmission Date: 20150721
  Serious: Yes (Hospitalization, Other)
  Sender: FDA-Public Use
  Company Number: US-ROCHE-1540853

PATIENT
  Sex: Female

DRUGS (7)
  1. PREDNISONE. [Concomitant]
     Active Substance: PREDNISONE
     Route: 065
     Dates: start: 20141223
  2. ACTEMRA [Suspect]
     Active Substance: TOCILIZUMAB
     Indication: RHEUMATOID ARTHRITIS
     Route: 058
  3. COLCRYS [Concomitant]
     Active Substance: COLCHICINE
     Route: 065
     Dates: start: 20141230
  4. FUROSEMIDE. [Concomitant]
     Active Substance: FUROSEMIDE
     Route: 065
     Dates: start: 20141222
  5. AMIODARONE [Concomitant]
     Active Substance: AMIODARONE
     Route: 065
     Dates: start: 20141223
  6. SOLU-MEDROL [Concomitant]
     Active Substance: METHYLPREDNISOLONE SODIUM SUCCINATE
  7. OMEPRAZOLE. [Concomitant]
     Active Substance: OMEPRAZOLE
     Route: 065
     Dates: start: 20141214

REACTIONS (19)
  - Pericardial effusion [Unknown]
  - Insomnia [Unknown]
  - Red blood cell sedimentation rate increased [Unknown]
  - Pleuritic pain [Recovered/Resolved]
  - Transaminases increased [Unknown]
  - Blood alkaline phosphatase increased [Unknown]
  - Liver disorder [Unknown]
  - Chest discomfort [Unknown]
  - Productive cough [Unknown]
  - Flushing [Unknown]
  - Palpitations [Unknown]
  - Pleural effusion [Unknown]
  - Rash [Unknown]
  - Product quality issue [Unknown]
  - Nausea [Unknown]
  - Chest pain [Unknown]
  - Sciatica [Unknown]
  - Urticaria [Unknown]
  - Musculoskeletal discomfort [Unknown]
